FAERS Safety Report 5625274-0 (Version None)
Quarter: 2008Q1

REPORT INFORMATION
  Report Type: 
  Country: None (occurrence: None)
  Receive Date: 20080208
  Receipt Date: 20080131
  Transmission Date: 20080703
  Serious: Yes (Other)
  Sender: FDA-Public Use
  Company Number: 2005-04-0967

PATIENT
  Age: 51 Year
  Sex: Male

DRUGS (2)
  1. RIBAVIRIN [Suspect]
     Indication: HEPATITIS C
     Dosage: 600 MG; BID; PO
     Route: 048
  2. INTERFERON ALFA-2B RECOMBINANT (S-P) (INTERFERON ALFA-2B) [Suspect]
     Indication: HEPATITIS C VIRUS
     Dosage: 3 MIU; TIW;

REACTIONS (2)
  - FACIAL PALSY [None]
  - LIVER TRANSPLANT [None]
